FAERS Safety Report 8171296-8 (Version None)
Quarter: 2012Q1

REPORT INFORMATION
  Report Type: 
  Country: None (occurrence: None)
  Receive Date: 20120228
  Receipt Date: 20120217
  Transmission Date: 20120608
  Serious: Yes (Hospitalization, Disabling, Other)
  Sender: FDA-Public Use
  Company Number: US-MERCK-1104USA03261

PATIENT
  Age: 58 Year
  Sex: Female
  Weight: 83 kg

DRUGS (8)
  1. CYMBALTA [Concomitant]
     Indication: DEPRESSION
     Route: 065
     Dates: start: 20050101
  2. FOSAMAX [Suspect]
     Indication: OSTEOPOROSIS
     Route: 048
     Dates: start: 20070901, end: 20071201
  3. FOSAMAX [Suspect]
     Route: 048
     Dates: start: 20080212, end: 20110201
  4. ATIVAN [Concomitant]
     Indication: ANXIETY
     Route: 065
     Dates: start: 20060101, end: 20090101
  5. LAMICTAL [Concomitant]
     Indication: DEPRESSION
     Route: 065
     Dates: start: 20000101
  6. ZOLOFT [Concomitant]
     Indication: DEPRESSION
     Route: 065
     Dates: start: 20010101
  7. FOSAMAX [Suspect]
     Indication: OSTEOPENIA
     Route: 048
     Dates: start: 20070901, end: 20071201
  8. FOSAMAX [Suspect]
     Route: 048
     Dates: start: 20080212, end: 20110201

REACTIONS (50)
  - ALPHA HAEMOLYTIC STREPTOCOCCAL INFECTION [None]
  - PURULENT DISCHARGE [None]
  - OSTEOMYELITIS [None]
  - TEMPOROMANDIBULAR JOINT SYNDROME [None]
  - MALAISE [None]
  - PARANASAL CYST [None]
  - SKIN DISORDER [None]
  - GASTROOESOPHAGEAL REFLUX DISEASE [None]
  - GRAFT INFECTION [None]
  - JAW DISORDER [None]
  - CELLULITIS [None]
  - COUGH [None]
  - DENTAL CARIES [None]
  - DEVICE MALFUNCTION [None]
  - GINGIVAL DISORDER [None]
  - ADVERSE EVENT [None]
  - ANKLE FRACTURE [None]
  - MULTIPLE FRACTURES [None]
  - BURSITIS [None]
  - PALPITATIONS [None]
  - ORAL INFECTION [None]
  - POLLAKIURIA [None]
  - FEEDING TUBE COMPLICATION [None]
  - HEADACHE [None]
  - ABSCESS JAW [None]
  - WOUND DEHISCENCE [None]
  - ABSCESS ORAL [None]
  - OSTEONECROSIS [None]
  - BLOOD CHOLESTEROL INCREASED [None]
  - FIBULA FRACTURE [None]
  - INCREASED TENDENCY TO BRUISE [None]
  - OSTEONECROSIS OF JAW [None]
  - JOINT SWELLING [None]
  - DYSPNOEA [None]
  - APHTHOUS STOMATITIS [None]
  - ANGIOEDEMA [None]
  - MOUTH ULCERATION [None]
  - FATIGUE [None]
  - ABNORMAL WEIGHT GAIN [None]
  - DRUG HYPERSENSITIVITY [None]
  - FAT TISSUE INCREASED [None]
  - FISTULA DISCHARGE [None]
  - PERIODONTAL DISEASE [None]
  - BRONCHITIS [None]
  - EPISTAXIS [None]
  - MUSCULOSKELETAL DISORDER [None]
  - PAIN IN EXTREMITY [None]
  - INFLUENZA [None]
  - HYPERHIDROSIS [None]
  - IMPAIRED HEALING [None]
